FAERS Safety Report 6762472-7 (Version None)
Quarter: 2010Q2

REPORT INFORMATION
  Report Type: 
  Country: None (occurrence: None)
  Receive Date: 20100609
  Receipt Date: 20100602
  Transmission Date: 20101027
  Serious: Yes (Disabling, Other)
  Sender: FDA-Public Use
  Company Number: US-CEPHALON-2010001933

PATIENT
  Sex: Female
  Weight: 79 kg

DRUGS (2)
  1. NUVIGIL [Suspect]
     Indication: FATIGUE
     Route: 048
     Dates: start: 20100305, end: 20100319
  2. CYMBALTA [Concomitant]
     Dates: start: 20071201

REACTIONS (2)
  - ANAPHYLACTIC REACTION [None]
  - DERMATITIS ALLERGIC [None]
